FAERS Safety Report 4436976-6 (Version None)
Quarter: 2004Q3

REPORT INFORMATION
  Report Type: 
  Country: None (occurrence: None)
  Receive Date: 20040830
  Receipt Date: 20040127
  Transmission Date: 20050211
  Serious: No
  Sender: FDA-Public Use
  Company Number: US-GLAXOSMITHKLINE-A0495286A

PATIENT
  Age: 41 Year
  Sex: Male
  Weight: 56.7 kg

DRUGS (1)
  1. BECONASE [Suspect]
     Dosage: 2SPR SINGLE DOSE
     Route: 045
     Dates: start: 20040126, end: 20040126

REACTIONS (1)
  - RASH PRURITIC [None]
